FAERS Safety Report 4633370-X (Version None)
Quarter: 2005Q2

REPORT INFORMATION
  Report Type: 
  Country: None (occurrence: None)
  Receive Date: 20050408
  Receipt Date: 20050329
  Transmission Date: 20051028
  Serious: Yes (Other)
  Sender: FDA-Public Use
  Company Number: 2005017372

PATIENT
  Age: 84 Year
  Sex: Female
  Weight: 58.0604 kg

DRUGS (9)
  1. CELEBREX [Suspect]
     Indication: NON-CARDIAC CHEST PAIN
     Dosage: 100 MG (100 MG, 1 IN 1 D), ORAL
     Route: 048
     Dates: start: 20040101, end: 20041201
  2. LIPITOR [Suspect]
     Indication: BLOOD CHOLESTEROL INCREASED
     Dosage: 40 MG (40 MG, 1 IN 1 D), ORAL
     Route: 048
     Dates: start: 20040101
  3. ASPIRIN [Concomitant]
  4. NISOLDIPINE (NISOLDIPINE) [Concomitant]
  5. ROFECOXIB [Concomitant]
  6. ROSUVASTATIN (ROSUVASTATIN) [Concomitant]
  7. METOPROLOL SUCCINATE [Concomitant]
  8. RISEDRONATE SODIUM (RISEDRONATE SODIUM) [Concomitant]
  9. CALCIUM (CALCIUM) [Concomitant]

REACTIONS (6)
  - ASTHENIA [None]
  - BALANCE DISORDER [None]
  - CEREBROVASCULAR ACCIDENT [None]
  - DIFFICULTY IN WALKING [None]
  - PARESIS [None]
  - VISUAL DISTURBANCE [None]
